FAERS Safety Report 21645421 (Version 1)
Quarter: 2022Q4

REPORT INFORMATION
  Report Type: Report from Study
  Country: US (occurrence: US)
  Receive Date: 20221126
  Receipt Date: 20221126
  Transmission Date: 20230113
  Serious: No
  Sender: FDA-Public Use
  Company Number: US-ABBVIE-4179931

PATIENT
  Sex: Female

DRUGS (10)
  1. SKYRIZI [Suspect]
     Active Substance: RISANKIZUMAB-RZAA
     Indication: Psoriasis
     Route: 058
     Dates: start: 20220603
  2. ZYRTEC [Concomitant]
     Active Substance: CETIRIZINE HYDROCHLORIDE
     Indication: Product used for unknown indication
     Dosage: 10 MG
  3. CRANBERRY [Concomitant]
     Active Substance: CRANBERRY
     Indication: Product used for unknown indication
     Dosage: 200 MG
  4. HYDROCHLOROTHIAZIDE [Concomitant]
     Active Substance: HYDROCHLOROTHIAZIDE
     Indication: Product used for unknown indication
     Dosage: 25 MG
  5. ROSUVASTATIN CALCIUM [Concomitant]
     Active Substance: ROSUVASTATIN CALCIUM
     Indication: Product used for unknown indication
     Dosage: 5 MG
  6. MODERNA COV1D-19 (EUA) [Concomitant]
     Indication: COVID-19 immunisation
     Dosage: 1 IN 1 ONCE
     Route: 030
  7. MODERNA COV1D-19 (EUA) [Concomitant]
     Indication: COVID-19 immunisation
     Dosage: 1 IN 1 ONCE (BOOSTER DOSE)
     Route: 030
  8. OSTEOBI-FLEX [Concomitant]
     Indication: Product used for unknown indication
     Dosage: 250-200 MG
  9. CENTRUM SILVER WOMEN [Concomitant]
     Indication: Product used for unknown indication
  10. LEXAPRO [Concomitant]
     Active Substance: ESCITALOPRAM OXALATE
     Indication: Product used for unknown indication
     Dosage: 10 MG

REACTIONS (3)
  - Wrong technique in product usage process [Not Recovered/Not Resolved]
  - Intentional product misuse [Unknown]
  - Kidney infection [Unknown]

NARRATIVE: CASE EVENT DATE: 20180101
